FAERS Safety Report 19374681 (Version 1)
Quarter: 2021Q2

REPORT INFORMATION
  Report Type: Report from Study
  Country: MX (occurrence: MX)
  Receive Date: 20210604
  Receipt Date: 20210604
  Transmission Date: 20210717
  Serious: Yes (Other)
  Sender: FDA-Public Use
  Company Number: NVSC2021MX121473

PATIENT
  Age: 79 Year
  Sex: Female

DRUGS (1)
  1. GLIVEC [Suspect]
     Active Substance: IMATINIB MESYLATE
     Indication: CHRONIC MYELOID LEUKAEMIA
     Dosage: 400 MG, QD
     Route: 048
     Dates: start: 201701

REACTIONS (3)
  - Cardiac disorder [Not Recovered/Not Resolved]
  - Pallor [Unknown]
  - Malaise [Unknown]

NARRATIVE: CASE EVENT DATE: 202105
